FAERS Safety Report 8518152-0 (Version None)
Quarter: 2012Q3

REPORT INFORMATION
  Report Type: 
  Country: None (occurrence: None)
  Receive Date: 20120718
  Receipt Date: 20111010
  Transmission Date: 20120928
  Serious: Yes (Hospitalization)
  Sender: FDA-Public Use
  Company Number: US-BRISTOL-MYERS SQUIBB COMPANY-16148272

PATIENT
  Age: 81 Year
  Sex: Male

DRUGS (9)
  1. DIGOXIN [Concomitant]
  2. SIMVASTATIN [Concomitant]
  3. CARVEDILOL [Concomitant]
  4. LISINOPRIL [Concomitant]
  5. OXYBUTYNIN [Concomitant]
  6. FUROSEMIDE [Concomitant]
  7. PANTOPRAZOLE [Concomitant]
  8. POTASSIUM CHLORIDE [Concomitant]
  9. WARFARIN SODIUM [Suspect]

REACTIONS (2)
  - INTRA-ABDOMINAL HAEMORRHAGE [None]
  - HAEMATOCHEZIA [None]
